FAERS Safety Report 7607933-3 (Version None)
Quarter: 2011Q3

REPORT INFORMATION
  Report Type: 
  Country: None (occurrence: None)
  Receive Date: 20110714
  Receipt Date: 20081024
  Transmission Date: 20111222
  Serious: Yes (Disabling, Other)
  Sender: FDA-Public Use
  Company Number: US-BAYER-US-2007-011617

PATIENT
  Age: 79 Year
  Sex: Male
  Weight: 85 kg

DRUGS (52)
  1. CLONAZEPAM [Concomitant]
  2. ALLOPURINOL [Concomitant]
  3. CALCIUM ACETATE [Concomitant]
  4. DILTIAZEM [Concomitant]
  5. DIGOXIN [Concomitant]
  6. MAGNEVIST [Suspect]
     Dates: start: 20061206, end: 20061206
  7. ACETAMINOPHEN [Concomitant]
  8. NEPHROCAPS [Concomitant]
  9. IRBESARTAN [Concomitant]
  10. NORVASC [Concomitant]
  11. METOPROLOL SUCCINATE [Concomitant]
  12. COUMADIN [Concomitant]
  13. MAGNEVIST [Suspect]
     Indication: NUCLEAR MAGNETIC RESONANCE IMAGING ABDOMINAL
     Dates: start: 19920619, end: 19920619
  14. MAGNEVIST [Suspect]
     Indication: NUCLEAR MAGNETIC RESONANCE IMAGING BRAIN
     Dosage: 20 ML, 1 DOSE
     Route: 042
     Dates: start: 19981105, end: 19981105
  15. DIGOXIN [Concomitant]
  16. VERPAMIL HCL [Concomitant]
  17. IPRATROPIUM BROMIDE [Concomitant]
  18. LIPITOR [Concomitant]
  19. PROTONIX [Concomitant]
  20. ZOFRAN [Concomitant]
  21. FERRLECIT [SODIUM FERRIGLUCONATE] [Concomitant]
     Dosage: 125 MG, 1X/WEEK
  22. MAGNEVIST [Suspect]
     Indication: ARTERIOGRAM RENAL
     Dosage: 50 ML (DAILY DOSE), ONCE,
     Dates: start: 20010207, end: 20010207
  23. MAGNEVIST [Suspect]
     Dosage: 20 ML, ^MAGNA^ 1 DOSE VIA POWER INJECTOR
     Route: 042
     Dates: start: 20061202, end: 20061202
  24. MAGNEVIST [Suspect]
     Dosage: 40 ML, 1 DOSE
     Route: 042
     Dates: start: 20061205, end: 20061205
  25. FERROUS SULFATE TAB [Concomitant]
  26. DROPERIDOL [Concomitant]
  27. METOPROLOL TARTRATE [Concomitant]
  28. VIAGRA [Concomitant]
  29. TENORMIN [Concomitant]
  30. ANTITHROMBOTIC AGENTS [Concomitant]
  31. CARDURA [Concomitant]
  32. RESTORIL [Concomitant]
  33. FLUTICASONE PROPIONATE [Concomitant]
  34. CITALOPRAM HYDROBROMIDE [Concomitant]
  35. GABAPENTIN [Concomitant]
  36. AMIODARONE HCL [Concomitant]
  37. CALCITRIOL [Concomitant]
  38. METOCLOPRAMIDE [Concomitant]
  39. ATORVASTATIN [Concomitant]
  40. OXAZEPAM [Concomitant]
  41. ALBUTEROL [Concomitant]
  42. LACTULOSE [Concomitant]
  43. CAMPHOR/MENTHOL/PHENOL [Concomitant]
  44. SENNA ALEXANDRINA [Concomitant]
  45. ATENOLOL [Concomitant]
  46. HYDROCHLOROTHIAZIDE [Concomitant]
  47. TEMAZEPAM [Concomitant]
  48. DOCUSATE SODIUM [Concomitant]
  49. ISOSORBIDE DINITRATE [Concomitant]
  50. ISOSORBIDE MONONITRATE [Concomitant]
  51. EPOETIN ALFA [Concomitant]
  52. DARBEPOETIN ALFA [Concomitant]

REACTIONS (20)
  - SKIN OEDEMA [None]
  - MUSCULOSKELETAL STIFFNESS [None]
  - INJURY [None]
  - GENERAL PHYSICAL HEALTH DETERIORATION [None]
  - SCAR [None]
  - JOINT RANGE OF MOTION DECREASED [None]
  - SKIN FIBROSIS [None]
  - NEPHROGENIC SYSTEMIC FIBROSIS [None]
  - SKIN TIGHTNESS [None]
  - SKIN INDURATION [None]
  - SERUM FERRITIN INCREASED [None]
  - MUSCLE CONTRACTURE [None]
  - EMOTIONAL DISTRESS [None]
  - QUALITY OF LIFE DECREASED [None]
  - SKIN HYPERTROPHY [None]
  - GAIT DISTURBANCE [None]
  - PAIN [None]
  - ANXIETY [None]
  - FIBROSIS [None]
  - MOBILITY DECREASED [None]
